FAERS Safety Report 11519819 (Version 1)
Quarter: 2015Q3

REPORT INFORMATION
  Report Type: Spontaneous
  Country: US (occurrence: None)
  Receive Date: 20150916
  Receipt Date: 20150916
  Transmission Date: 20151125
  Serious: Yes (Life-Threatening, Hospitalization)
  Sender: FDA-Public Use
  Company Number: RAP-001091-2015

PATIENT
  Age: 28 Year
  Sex: Female
  Weight: 49.8 kg

DRUGS (1)
  1. PROCYSBI DELAYED-RELEASE [Suspect]
     Active Substance: CYSTEAMINE BITARTRATE
     Indication: CYSTINOSIS
     Route: 048
     Dates: start: 201307

REACTIONS (4)
  - Dyspnoea [None]
  - Foot fracture [None]
  - Lower limb fracture [None]
  - Fall [None]

NARRATIVE: CASE EVENT DATE: 2015
